FAERS Safety Report 21725256 (Version 1)
Quarter: 2022Q4

REPORT INFORMATION
  Report Type: Report from Study
  Country: US (occurrence: US)
  Receive Date: 20221214
  Receipt Date: 20221214
  Transmission Date: 20230112
  Serious: Yes (Death, Life-Threatening, Other)
  Sender: FDA-Public Use
  Company Number: US-SUN PHARMACEUTICAL INDUSTRIES LTD-2022R1-368450

PATIENT
  Age: 39 Year
  Sex: Male

DRUGS (1)
  1. ACETAMINOPHEN [Suspect]
     Active Substance: ACETAMINOPHEN
     Indication: Product used for unknown indication
     Dosage: UNK
     Route: 065

REACTIONS (10)
  - Toxicity to various agents [Fatal]
  - Acute kidney injury [Unknown]
  - Hypotension [Unknown]
  - Respiratory depression [Unknown]
  - Depressed level of consciousness [Unknown]
  - Hypoglycaemia [Unknown]
  - Hepatotoxicity [Unknown]
  - Coagulopathy [Unknown]
  - Rhabdomyolysis [Unknown]
  - Jaundice [Unknown]
